FAERS Safety Report 9807772 (Version 3)
Quarter: 2014Q3

REPORT INFORMATION
  Report Type: Spontaneous
  Country: US (occurrence: US)
  Receive Date: 20140110
  Receipt Date: 20140908
  Transmission Date: 20150326
  Serious: Yes (Hospitalization, Other)
  Sender: FDA-Public Use
  Company Number: US-009507513-1401USA003442

PATIENT
  Sex: Female

DRUGS (1)
  1. NUVARING [Suspect]
     Active Substance: ETHINYL ESTRADIOL\ETONOGESTREL
     Indication: CONTRACEPTION
     Dosage: UNK
     Route: 067
     Dates: start: 2008, end: 20100304

REACTIONS (13)
  - Pulmonary embolism [Unknown]
  - Chest pain [Recovered/Resolved]
  - Anxiety [Unknown]
  - Insomnia [Unknown]
  - Hepatic steatosis [Unknown]
  - Abdominal pain upper [Unknown]
  - Uterine haemorrhage [Unknown]
  - Ascites [Unknown]
  - Cough [Unknown]
  - Depression [Unknown]
  - Migraine [Unknown]
  - Dysuria [Unknown]
  - Glucose tolerance impaired [Unknown]

NARRATIVE: CASE EVENT DATE: 20080218
